FAERS Safety Report 4267283-2 (Version None)
Quarter: 2004Q1

REPORT INFORMATION
  Report Type: 
  Country: None (occurrence: None)
  Receive Date: 20040108
  Receipt Date: 20031013
  Transmission Date: 20041129
  Serious: Yes (Death, Hospitalization, Disabling)
  Sender: FDA-Public Use
  Company Number: WAES 0310USA01596

PATIENT
  Age: 61 Year
  Sex: Female
  Weight: 54 kg

DRUGS (13)
  1. PERCOCET [Concomitant]
     Dates: start: 20031006, end: 20031010
  2. AMIODARONE [Concomitant]
     Dates: start: 20031010
  3. BICARBONATE [Concomitant]
     Dates: start: 20031010
  4. CALCIUM (UNSPECIFIED) [Concomitant]
     Dates: start: 20031010
  5. FENTANYL [Concomitant]
     Dates: start: 20031008, end: 20031010
  6. FENTANYL [Concomitant]
     Dates: start: 20031010
  7. NEURONTIN [Concomitant]
     Route: 048
     Dates: start: 20031010
  8. TORADOL [Concomitant]
     Route: 042
     Dates: start: 20031006, end: 20031006
  9. TORADOL [Concomitant]
     Route: 042
     Dates: start: 20031006, end: 20031008
  10. METFORMIN [Concomitant]
     Dates: start: 20031004, end: 20031010
  11. MORPHINE SULFATE [Concomitant]
     Dates: start: 20031007
  12. VIOXX [Suspect]
     Indication: POST PROCEDURAL PAIN
     Route: 048
     Dates: start: 20031008, end: 20031010
  13. VIOXX [Suspect]
     Route: 048
     Dates: start: 20031008, end: 20031010

REACTIONS (18)
  - BRADYCARDIA [None]
  - BUNDLE BRANCH BLOCK LEFT [None]
  - CARDIAC ARREST [None]
  - CARDIO-RESPIRATORY ARREST [None]
  - CHEST WALL PAIN [None]
  - GENERAL PHYSICAL HEALTH DETERIORATION [None]
  - HYPERKALAEMIA [None]
  - LACTIC ACIDOSIS [None]
  - MYOCARDIAL INFARCTION [None]
  - NAUSEA [None]
  - PERIPHERAL EMBOLISM [None]
  - PNEUMONIA [None]
  - PRESCRIBED OVERDOSE [None]
  - PULSE ABSENT [None]
  - RENAL EMBOLISM [None]
  - RENAL FAILURE ACUTE [None]
  - RESPIRATORY FAILURE [None]
  - VENTRICULAR TACHYCARDIA [None]
